FAERS Safety Report 4844585-X (Version None)
Quarter: 2005Q4

REPORT INFORMATION
  Report Type: 
  Country: None (occurrence: None)
  Receive Date: 20051125
  Receipt Date: 20051114
  Transmission Date: 20060501
  Serious: Yes (Hospitalization, Other)
  Sender: FDA-Public Use
  Company Number: 2005156416

PATIENT
  Age: 80 Year
  Sex: Female
  Weight: 74.8435 kg

DRUGS (9)
  1. XALATAN [Suspect]
     Indication: GLAUCOMA
     Dosage: 4 DROPS IN LEFT EYE (1 DROP), OPHTHALMIC
     Route: 047
  2. NEURONTIN [Suspect]
     Indication: NEUROPATHY
     Dosage: 300 MG (300 MG, DAILY),
     Dates: start: 20020101
  3. ZOLOFT [Suspect]
     Indication: DEPRESSION
     Dosage: 125 MG (DAILY),
  4. DOXAZOSIN (DOXAZOSIN) [Concomitant]
  5. GLUCOTROL [Concomitant]
  6. SYNTHROID [Concomitant]
  7. ALPRAZOLAM [Concomitant]
  8. TRICOR [Concomitant]
  9. ASPIRIN [Concomitant]

REACTIONS (7)
  - ARTHRALGIA [None]
  - CHONDROPATHY [None]
  - FALL [None]
  - HYSTERECTOMY [None]
  - INSOMNIA [None]
  - KNEE OPERATION [None]
  - PAIN [None]
